FAERS Safety Report 24004495 (Version 1)
Quarter: 2024Q2

REPORT INFORMATION
  Report Type: Spontaneous
  Country: US (occurrence: US)
  Receive Date: 20240624
  Receipt Date: 20240624
  Transmission Date: 20240716
  Serious: Yes (Hospitalization, Other)
  Sender: FDA-Public Use
  Company Number: US-009507513-2406USA007184

PATIENT
  Sex: Male

DRUGS (1)
  1. KEYTRUDA [Suspect]
     Active Substance: PEMBROLIZUMAB
     Indication: Malignant fibrous histiocytoma
     Dosage: UNK, Q3W

REACTIONS (3)
  - Diaphragmatic paralysis [Recovering/Resolving]
  - Acute respiratory failure [Recovered/Resolved]
  - Myopathy [Recovering/Resolving]
